FAERS Safety Report 10250553 (Version 1)
Quarter: 2014Q2

REPORT INFORMATION
  Report Type: Spontaneous
  Country: US (occurrence: US)
  Receive Date: 20140620
  Receipt Date: 20140620
  Transmission Date: 20141212
  Serious: Yes (Hospitalization)
  Sender: FDA-Public Use
  Company Number: US-PERRIGO-14US005959

PATIENT
  Age: 28 Year
  Sex: Male

DRUGS (2)
  1. NAPROXEN SODIUM 220 MG 368 [Suspect]
     Indication: OVERDOSE
     Dosage: 70.4 GRAMS
     Route: 065
  2. ALCOHOL [Suspect]
     Indication: PRODUCT USED FOR UNKNOWN INDICATION
     Dosage: UNKNOWN AMOUNT
     Route: 048

REACTIONS (3)
  - Overdose [Recovered/Resolved]
  - Metabolic acidosis [Recovered/Resolved]
  - Convulsion [Recovered/Resolved]
